FAERS Safety Report 6675453-9 (Version None)
Quarter: 2010Q2

REPORT INFORMATION
  Report Type: 
  Country: None (occurrence: None)
  Receive Date: 20100409
  Receipt Date: 20100406
  Transmission Date: 20101027
  Serious: Yes (Death)
  Sender: FDA-Public Use
  Company Number: A0853712A

PATIENT
  Age: 76 Year
  Sex: Male

DRUGS (2)
  1. ALKERAN [Suspect]
     Indication: MULTIPLE MYELOMA
     Dosage: 2MG EIGHT TIMES PER DAY
     Route: 048
     Dates: start: 20100101
  2. PREDNISONE [Concomitant]

REACTIONS (1)
  - DEATH [None]
